FAERS Safety Report 17025612 (Version 2)
Quarter: 2019Q4

REPORT INFORMATION
  Report Type: Spontaneous
  Country: US (occurrence: US)
  Receive Date: 20191113
  Receipt Date: 20191226
  Transmission Date: 20200122
  Serious: No
  Sender: FDA-Public Use
  Company Number: US-PFIZER INC-2019485117

PATIENT
  Age: 57 Year
  Sex: Female

DRUGS (1)
  1. GENOTROPIN [Suspect]
     Active Substance: SOMATROPIN
     Dosage: 0.3 MG, UNK
     Dates: start: 201910

REACTIONS (4)
  - Blood glucose increased [Unknown]
  - Device issue [Unknown]
  - Product dose omission [Unknown]
  - Device use issue [Unknown]
